FAERS Safety Report 24951625 (Version 1)
Quarter: 2025Q1

REPORT INFORMATION
  Report Type: Spontaneous
  Country: US (occurrence: US)
  Receive Date: 20250210
  Receipt Date: 20250210
  Transmission Date: 20250409
  Serious: No
  Sender: INTRA-CELLULAR THERAPIES
  Company Number: US-INTRA-CELLULAR THERAPIES, INC.-2024ICT01610

PATIENT
  Age: 56 Year
  Sex: Male
  Weight: 95.238 kg

DRUGS (4)
  1. CAPLYTA [Suspect]
     Active Substance: LUMATEPERONE
     Indication: Bipolar disorder
     Dosage: 42 MG, 1X/DAY, 2 HOURS BEFORE BEDTIME
     Route: 048
     Dates: start: 20241001, end: 20241028
  2. QUETIAPINE [Suspect]
     Active Substance: QUETIAPINE
  3. LAMOTRIGINE [Concomitant]
     Active Substance: LAMOTRIGINE
  4. PROZAC [Concomitant]
     Active Substance: FLUOXETINE HYDROCHLORIDE

REACTIONS (10)
  - Memory impairment [Not Recovered/Not Resolved]
  - Feeling jittery [Not Recovered/Not Resolved]
  - Panic attack [Not Recovered/Not Resolved]
  - Anxiety [Not Recovered/Not Resolved]
  - Influenza like illness [Not Recovered/Not Resolved]
  - Somnolence [Recovered/Resolved]
  - Restlessness [Not Recovered/Not Resolved]
  - Dizziness [Recovering/Resolving]
  - Gait disturbance [Recovering/Resolving]
  - Akathisia [Not Recovered/Not Resolved]

NARRATIVE: CASE EVENT DATE: 20241001
